FAERS Safety Report 13434448 (Version 1)
Quarter: 2017Q2

REPORT INFORMATION
  Report Type: Spontaneous
  Country: AU (occurrence: AU)
  Receive Date: 20170412
  Receipt Date: 20170412
  Transmission Date: 20170830
  Serious: Yes (Hospitalization, Congenital Anomaly, Other)
  Sender: FDA-Public Use
  Company Number: AU-APOTEX-2017AP010463

PATIENT
  Sex: Female

DRUGS (8)
  1. TRANYLCYPROMINE [Suspect]
     Active Substance: TRANYLCYPROMINE
     Dosage: UNK
     Route: 063
  2. PIMOZIDE. [Suspect]
     Active Substance: PIMOZIDE
     Dosage: UNK
     Route: 063
  3. CHEMMART ALPRAZOLAM [Suspect]
     Active Substance: ALPRAZOLAM
     Indication: PRODUCT USED FOR UNKNOWN INDICATION
     Dosage: UNK
     Route: 064
  4. CHEMMART ALPRAZOLAM [Suspect]
     Active Substance: ALPRAZOLAM
     Dosage: UNK
     Route: 063
  5. PIMOZIDE. [Suspect]
     Active Substance: PIMOZIDE
     Indication: PRODUCT USED FOR UNKNOWN INDICATION
     Dosage: UNK
     Route: 064
  6. DIAZEPAM. [Suspect]
     Active Substance: DIAZEPAM
     Indication: PRODUCT USED FOR UNKNOWN INDICATION
     Dosage: UNK
     Route: 064
  7. DIAZEPAM. [Suspect]
     Active Substance: DIAZEPAM
     Dosage: UNK
     Route: 063
  8. TRANYLCYPROMINE [Suspect]
     Active Substance: TRANYLCYPROMINE
     Indication: PRODUCT USED FOR UNKNOWN INDICATION
     Route: 064

REACTIONS (29)
  - Foetal growth restriction [Unknown]
  - Micrognathia [Unknown]
  - Respiratory distress [Unknown]
  - Congenital eyelid malformation [Unknown]
  - Craniosynostosis [Unknown]
  - Deafness neurosensory [Unknown]
  - Congenital central nervous system anomaly [Unknown]
  - Eyelid ptosis [Unknown]
  - Feeding intolerance [Unknown]
  - Hypertelorism of orbit [Unknown]
  - Ventricular septal defect [Unknown]
  - Ear malformation [Unknown]
  - Hydrocephalus [Unknown]
  - Exophthalmos [Unknown]
  - Developmental delay [Unknown]
  - Foetal exposure during pregnancy [Unknown]
  - Arnold-Chiari malformation [Unknown]
  - Optic atrophy [Unknown]
  - Atrioventricular septal defect [Unknown]
  - Phalangeal hypoplasia [Unknown]
  - Cleft palate [Unknown]
  - Skin discolouration [Unknown]
  - Exposure during breast feeding [Unknown]
  - Patent ductus arteriosus [Unknown]
  - Scoliosis [Unknown]
  - Nose deformity [Unknown]
  - Atrial septal defect [Unknown]
  - Drug interaction [Unknown]
  - Abdominal distension [Unknown]
